FAERS Safety Report 7020453-2 (Version None)
Quarter: 2010Q3

REPORT INFORMATION
  Report Type: 
  Country: None (occurrence: None)
  Receive Date: 20100929
  Receipt Date: 20100920
  Transmission Date: 20110219
  Serious: Yes (Hospitalization, Other)
  Sender: FDA-Public Use
  Company Number: US-ROCHE-710416

PATIENT
  Sex: Male
  Weight: 99.8 kg

DRUGS (4)
  1. PEGINTERFERON ALFA-2A [Suspect]
     Indication: HEPATITIS C
     Route: 058
     Dates: start: 20100401
  2. COPEGUS [Suspect]
     Indication: HEPATITIS C
     Route: 048
     Dates: start: 20100401
  3. FAMOTIDINE [Concomitant]
  4. ENALAPRIL MALEATE [Concomitant]
     Dates: start: 20090101

REACTIONS (14)
  - ABDOMINAL DISCOMFORT [None]
  - DEHYDRATION [None]
  - DRY MOUTH [None]
  - EXTRASYSTOLES [None]
  - FATIGUE [None]
  - HYPERTENSION [None]
  - LIP DRY [None]
  - NEPHROLITHIASIS [None]
  - RED BLOOD CELL COUNT DECREASED [None]
  - TINEA PEDIS [None]
  - TONGUE DRY [None]
  - URTICARIA [None]
  - VIRAL INFECTION [None]
  - WEIGHT DECREASED [None]
